FAERS Safety Report 11806605 (Version 1)
Quarter: 2015Q4

REPORT INFORMATION
  Report Type: Spontaneous
  Country: US (occurrence: US)
  Receive Date: 20151207
  Receipt Date: 20151207
  Transmission Date: 20160305
  Serious: No
  Sender: FDA-Public Use
  Company Number: US-PFIZER INC-2015407992

PATIENT
  Age: 68 Year
  Sex: Male
  Weight: 97.5 kg

DRUGS (10)
  1. ASPIRIN. [Concomitant]
     Active Substance: ASPIRIN
     Dosage: UNK
  2. REMODULIN [Suspect]
     Active Substance: TREPROSTINIL
     Dosage: UNK, (0.0285 UG/KG/MIN)
     Route: 058
  3. REMODULIN [Suspect]
     Active Substance: TREPROSTINIL
     Dosage: UNK, ((0.011 UG/KG/MIN))
  4. REMODULIN [Suspect]
     Active Substance: TREPROSTINIL
     Dosage: UNK, (0.036 UG/KG/MIN)
     Route: 042
     Dates: start: 20130204
  5. TYVASO [Suspect]
     Active Substance: TREPROSTINIL
     Indication: PULMONARY ARTERIAL HYPERTENSION
     Dosage: UNK, 4X/DAY, (18-54 UG 3-9 BREATHS)
     Route: 055
     Dates: start: 20151029
  6. REVATIO [Suspect]
     Active Substance: SILDENAFIL CITRATE
     Dosage: UNK
     Dates: start: 20151022
  7. REMODULIN [Suspect]
     Active Substance: TREPROSTINIL
     Indication: PULMONARY ARTERIAL HYPERTENSION
     Dosage: UNK, (0.036 UG/KG/MIN)
     Route: 058
     Dates: start: 20130112
  8. REMODULIN [Suspect]
     Active Substance: TREPROSTINIL
     Dosage: UNK
     Route: 058
  9. OPSUMIT [Suspect]
     Active Substance: MACITENTAN
     Dosage: UNK
     Dates: start: 20151022
  10. ADCIRCA [Concomitant]
     Active Substance: TADALAFIL

REACTIONS (13)
  - Injection site discharge [Unknown]
  - Blister [Unknown]
  - Infusion site oedema [Unknown]
  - Infusion site pain [Not Recovered/Not Resolved]
  - Malaise [Unknown]
  - Presyncope [Unknown]
  - Injection site pain [Unknown]
  - Cough [Unknown]
  - Weight decreased [Unknown]
  - Infusion site infection [Unknown]
  - Dyspnoea [Recovered/Resolved]
  - Walking distance test abnormal [Unknown]
  - Infusion site haemorrhage [Unknown]

NARRATIVE: CASE EVENT DATE: 201507
